FAERS Safety Report 24079208 (Version 1)
Quarter: 2024Q3

REPORT INFORMATION
  Report Type: Spontaneous
  Country: US (occurrence: None)
  Receive Date: 20240710
  Receipt Date: 20240710
  Transmission Date: 20241017
  Serious: Yes (Hospitalization)
  Sender: Public
  Company Number: None

PATIENT
  Sex: Female

DRUGS (5)
  1. OPSUMIT [Suspect]
     Active Substance: MACITENTAN
     Indication: Pulmonary arterial hypertension
     Dosage: FREQUENCY : DAILY;?
     Route: 048
     Dates: start: 202302
  2. TADALAFIL [Concomitant]
  3. UPTRAVI [Concomitant]
  4. VELETRI SDV [Concomitant]
  5. WINREVAIR SDV [Concomitant]

REACTIONS (1)
  - Blood potassium decreased [None]
